FAERS Safety Report 4363849-X (Version None)
Quarter: 2004Q2

REPORT INFORMATION
  Report Type: 
  Country: None (occurrence: None)
  Receive Date: 20040519
  Receipt Date: 20040510
  Transmission Date: 20050107
  Serious: Yes (Life-Threatening, Hospitalization)
  Sender: FDA-Public Use
  Company Number: DK-2004-025316

PATIENT
  Age: 40 Year
  Sex: Female

DRUGS (1)
  1. LEVONORGESTREL [Suspect]
     Indication: MENOMETRORRHAGIA
     Dosage: 20 UG/DAY, CONT, INTRA-IUTERINE
     Route: 015
     Dates: start: 20040310, end: 20040420

REACTIONS (1)
  - TRANSIENT ISCHAEMIC ATTACK [None]
